FAERS Safety Report 4989433-2 (Version None)
Quarter: 2006Q2

REPORT INFORMATION
  Report Type: 
  Country: None (occurrence: None)
  Receive Date: 20060502
  Receipt Date: 20050509
  Transmission Date: 20061013
  Serious: Yes (Hospitalization)
  Sender: FDA-Public Use
  Company Number: US-MERCK-0505USA01116

PATIENT
  Age: 43 Year
  Sex: Male
  Weight: 114 kg

DRUGS (2)
  1. VIOXX [Suspect]
     Indication: RIB FRACTURE
     Route: 048
     Dates: start: 19991101, end: 20041001
  2. VIOXX [Suspect]
     Indication: INFLAMMATION
     Route: 048
     Dates: start: 19991101, end: 20041001

REACTIONS (27)
  - ACCIDENTAL NEEDLE STICK [None]
  - ACUTE PRERENAL FAILURE [None]
  - ANXIETY [None]
  - ASTHENIA [None]
  - ASTHMA [None]
  - BRONCHIECTASIS [None]
  - BRONCHITIS ACUTE [None]
  - CARDIAC FAILURE CONGESTIVE [None]
  - CHEST PAIN [None]
  - CHRONIC OBSTRUCTIVE PULMONARY DISEASE [None]
  - CUSHINGOID [None]
  - DEPRESSED MOOD [None]
  - DERMATITIS CONTACT [None]
  - HYPERKALAEMIA [None]
  - HYPOKALAEMIA [None]
  - HYPOVOLAEMIA [None]
  - INSOMNIA [None]
  - MOOD ALTERED [None]
  - MYOCARDIAL INFARCTION [None]
  - OEDEMA [None]
  - OSTEOPOROSIS [None]
  - PAIN [None]
  - PLEURITIC PAIN [None]
  - PNEUMONIA [None]
  - PYREXIA [None]
  - RASH [None]
  - TINEA CRURIS [None]
